FAERS Safety Report 6376435-7 (Version None)
Quarter: 2009Q3

REPORT INFORMATION
  Report Type: 
  Country: None (occurrence: None)
  Receive Date: 20090922
  Receipt Date: 20090922
  Transmission Date: 20100115
  Serious: Yes (Other)
  Sender: FDA-Public Use
  Company Number: None

PATIENT
  Age: 58 Year
  Sex: Male
  Weight: 81.6475 kg

DRUGS (1)
  1. SKELAXIN [Suspect]
     Indication: MUSCLE STRAIN
     Dosage: 800 1 PER DAY AT BED PO
     Route: 048
     Dates: start: 20090828, end: 20090914

REACTIONS (4)
  - BACK PAIN [None]
  - CONSTIPATION [None]
  - INJURY [None]
  - MUSCLE SPASMS [None]
